FAERS Safety Report 11024525 (Version 1)
Quarter: 2015Q2

REPORT INFORMATION
  Report Type: Spontaneous
  Country: FI (occurrence: FI)
  Receive Date: 20150414
  Receipt Date: 20150414
  Transmission Date: 20150821
  Serious: Yes (Disabling)
  Sender: FDA-Public Use
  Company Number: FI-ORION CORPORATION ORION PHARMA-SERO2015-0009

PATIENT
  Sex: Female

DRUGS (4)
  1. XEPLION [Suspect]
     Active Substance: PALIPERIDONE PALMITATE
     Indication: PSYCHOTIC DISORDER
     Route: 030
     Dates: start: 20140228, end: 20140714
  2. SERONIL [Suspect]
     Active Substance: FLUOXETINE HYDROCHLORIDE
     Indication: EATING DISORDER
     Route: 048
     Dates: start: 20131122
  3. RISPERDAL [Suspect]
     Active Substance: RISPERIDONE
     Indication: PSYCHOTIC DISORDER
     Route: 048
     Dates: start: 20140109
  4. THYROXIN [Concomitant]
     Active Substance: LEVOTHYROXINE
     Route: 048

REACTIONS (6)
  - Pituitary tumour benign [Not Recovered/Not Resolved]
  - Weight increased [Not Recovered/Not Resolved]
  - Drug interaction [Not Recovered/Not Resolved]
  - Schizophrenia [None]
  - Overweight [None]
  - Blood prolactin increased [Not Recovered/Not Resolved]
